FAERS Safety Report 14144176 (Version 1)
Quarter: 2017Q4

REPORT INFORMATION
  Report Type: Spontaneous
  Country: US (occurrence: US)
  Receive Date: 20171031
  Receipt Date: 20171031
  Transmission Date: 20180321
  Serious: Yes (Hospitalization, Other)
  Sender: FDA-Public Use
  Company Number: US-APOTEX-2017AP020768

PATIENT
  Age: 14 Year
  Sex: Female

DRUGS (1)
  1. DIPHENHYDRAMINE HCL [Suspect]
     Active Substance: DIPHENHYDRAMINE HYDROCHLORIDE
     Indication: PRODUCT USED FOR UNKNOWN INDICATION
     Route: 065

REACTIONS (7)
  - Cardiac arrest [Recovered/Resolved]
  - Confusional state [Unknown]
  - Ataxia [Not Recovered/Not Resolved]
  - Intentional product misuse [Unknown]
  - Cognitive disorder [Not Recovered/Not Resolved]
  - Somnolence [Unknown]
  - Generalised tonic-clonic seizure [Recovered/Resolved]
